FAERS Safety Report 7345305-X (Version None)
Quarter: 2011Q1

REPORT INFORMATION
  Report Type: 
  Country: None (occurrence: None)
  Receive Date: 20110310
  Receipt Date: 20110309
  Transmission Date: 20110831
  Serious: Yes (Death, Other)
  Sender: FDA-Public Use
  Company Number: US-AMGEN-USASP2011012443

PATIENT
  Sex: Female
  Weight: 53.968 kg

DRUGS (4)
  1. CORTICOSTEROIDS [Concomitant]
  2. ANTIBIOTICS [Concomitant]
  3. IMMUNOGLOBULINS [Concomitant]
  4. NPLATE [Suspect]
     Indication: IDIOPATHIC THROMBOCYTOPENIC PURPURA
     Dosage: 1 A?G/KG, QWK
     Route: 058
     Dates: start: 20110210

REACTIONS (2)
  - SEPSIS [None]
  - DRUG INEFFECTIVE [None]
